FAERS Safety Report 8058764-4 (Version None)
Quarter: 2012Q1

REPORT INFORMATION
  Report Type: 
  Country: None (occurrence: None)
  Receive Date: 20120120
  Receipt Date: 20120117
  Transmission Date: 20120608
  Serious: Yes (Hospitalization)
  Sender: FDA-Public Use
  Company Number: US-AMGEN-USASP2011039895

PATIENT
  Age: 98 Year
  Sex: Female
  Weight: 55.51 kg

DRUGS (2)
  1. ARANESP [Suspect]
     Indication: ANAEMIA
     Dates: start: 20100101
  2. NEULASTA [Suspect]
     Indication: PRODUCT USED FOR UNKNOWN INDICATION
     Dosage: 6 MG, UNK
     Route: 058
     Dates: start: 20110728

REACTIONS (3)
  - BONE PAIN [None]
  - RECTAL HAEMORRHAGE [None]
  - WRONG DRUG ADMINISTERED [None]
